FAERS Safety Report 4865587-3 (Version None)
Quarter: 2005Q4

REPORT INFORMATION
  Report Type: 
  Country: None (occurrence: None)
  Receive Date: 20051220
  Receipt Date: 20051201
  Transmission Date: 20060501
  Serious: Yes (Hospitalization)
  Sender: FDA-Public Use
  Company Number: US200511000675

PATIENT
  Age: 85 Year
  Sex: Female

DRUGS (2)
  1. FORTEO [Suspect]
     Dates: start: 20040101
  2. FORTEO PEN (250MCG/ML) (FORTEO PEN 250MCG/ML (3ML)) PEN, DISPOSABLE [Concomitant]

REACTIONS (5)
  - DISLOCATION OF JOINT PROSTHESIS [None]
  - FAILURE OF IMPLANT [None]
  - FALL [None]
  - JOINT ARTHROPLASTY [None]
  - LOWER LIMB DEFORMITY [None]
